FAERS Safety Report 4551924-6 (Version None)
Quarter: 2004Q4

REPORT INFORMATION
  Report Type: 
  Country: None (occurrence: None)
  Receive Date: 20041217
  Receipt Date: 20040823
  Transmission Date: 20050328
  Serious: No
  Sender: FDA-Public Use
  Company Number: 2004-BP-07168BP

PATIENT
  Age: 71 Year
  Sex: Male

DRUGS (13)
  1. SPIRIVA [Suspect]
     Indication: CHRONIC OBSTRUCTIVE AIRWAYS DISEASE
     Dosage: 18 MCG (18 MCG), IH
     Route: 055
     Dates: start: 20040819
  2. ALBUTEROL [Concomitant]
  3. ACETYLSALICYLIC ACID SRT [Concomitant]
  4. CARDURA (DOXAZOSIN ACID) [Concomitant]
  5. DECONAMINE (DECONAMINE) [Concomitant]
  6. FOSAMAX [Concomitant]
  7. POTASSIUM (POTASSIUM) [Concomitant]
  8. NEURONTIN [Concomitant]
  9. HUMIBID (GUAIFENESIN) [Concomitant]
  10. ZOCOR [Concomitant]
  11. ADVAIR (SERETIDE MITE) [Concomitant]
  12. FORADIL [Concomitant]
  13. INSULIN [Concomitant]

REACTIONS (1)
  - DRUG INEFFECTIVE [None]
